FAERS Safety Report 8046344-6 (Version None)
Quarter: 2012Q1

REPORT INFORMATION
  Report Type: 
  Country: None (occurrence: None)
  Receive Date: 20120113
  Receipt Date: 20120103
  Transmission Date: 20120608
  Serious: Yes (Other)
  Sender: FDA-Public Use
  Company Number: US-PFIZER INC-2012001477

PATIENT
  Sex: Female
  Weight: 108.84 kg

DRUGS (6)
  1. ADVAIR DISKUS 100/50 [Concomitant]
     Indication: ASTHMA
     Dosage: UNK, 2X/DAY
  2. CELEXA [Concomitant]
     Dosage: 20 MG, 1X/DAY
  3. VENTOLIN [Concomitant]
     Indication: ASTHMA
     Dosage: UNK, 4X/DAY
  4. TOPROL-XL [Concomitant]
     Indication: HYPERTENSION
     Dosage: 25 MG, 1X/DAY
  5. CHANTIX [Suspect]
     Indication: SMOKING CESSATION THERAPY
     Dosage: 0.5 MG, 1X/DAY
     Route: 048
     Dates: start: 20120101
  6. ZOCOR [Concomitant]
     Indication: HIGH DENSITY LIPOPROTEIN DECREASED
     Dosage: 40 MG, 1X/DAY

REACTIONS (4)
  - INSOMNIA [None]
  - ANXIETY [None]
  - PALPITATIONS [None]
  - EMOTIONAL DISORDER [None]
